FAERS Safety Report 9932729 (Version 1)
Quarter: 2014Q1

REPORT INFORMATION
  Report Type: Spontaneous
  Country: US (occurrence: US)
  Receive Date: 20140228
  Receipt Date: 20140228
  Transmission Date: 20141002
  Serious: Yes (Other)
  Sender: FDA-Public Use
  Company Number: US-GLAXOSMITHKLINE-A1026647A

PATIENT
  Sex: Female

DRUGS (5)
  1. LAMOTRIGINE [Suspect]
     Indication: CONVULSION
     Dosage: 200MG TWICE PER DAY
     Route: 048
  2. KEPPRA [Concomitant]
  3. PHENYTOIN [Concomitant]
  4. ARICEPT [Concomitant]
  5. CELEXA [Concomitant]

REACTIONS (3)
  - Convulsion [Unknown]
  - Fatigue [Unknown]
  - Somnolence [Unknown]
